FAERS Safety Report 7681663-4 (Version None)
Quarter: 2011Q3

REPORT INFORMATION
  Report Type: 
  Country: None (occurrence: None)
  Receive Date: 20110812
  Receipt Date: 20110807
  Transmission Date: 20111222
  Serious: Yes (Death, Hospitalization)
  Sender: FDA-Public Use
  Company Number: RS-GENZYME-CAMP-1001716

PATIENT
  Sex: Male
  Weight: 82 kg

DRUGS (16)
  1. NEUPOGEN [Concomitant]
     Indication: PLATELET COUNT DECREASED
     Dosage: 48 MU, QD
     Route: 058
     Dates: start: 20110718, end: 20110718
  2. METHYLPREDNISOLONE [Concomitant]
     Indication: PLATELET COUNT DECREASED
     Dosage: UNK
  3. ALEMTUZUMAB [Suspect]
     Dosage: 12 MG, QDX3
     Route: 042
     Dates: start: 20091222, end: 20091224
  4. H2 BLOCKER [Concomitant]
     Indication: SEPSIS
  5. NEUPOGEN [Concomitant]
     Dosage: UNK
  6. NOVALGETAL [Concomitant]
     Indication: PYREXIA
     Dosage: 2.5 G, BID
     Route: 042
     Dates: start: 20070805, end: 20110807
  7. FEBRICET [Concomitant]
     Indication: PYREXIA
     Dosage: UNK
     Route: 048
     Dates: start: 20110805, end: 20110807
  8. METHYLPREDNISOLONE [Concomitant]
     Dosage: 80 MG, QD
     Route: 042
     Dates: start: 20110725
  9. ALEMTUZUMAB [Suspect]
     Indication: MULTIPLE SCLEROSIS
     Dosage: 12 MG, QDX5
     Route: 042
     Dates: start: 20081222, end: 20081226
  10. METHYLPREDNISOLONE [Concomitant]
     Dosage: 100 MG, QD
     Route: 042
     Dates: start: 20110715, end: 20110724
  11. FORCAS [Concomitant]
     Indication: SEPSIS
     Dosage: 2 G, BID
     Route: 042
     Dates: start: 20110805, end: 20110807
  12. IMMUNE GLOBULIN NOS [Concomitant]
     Indication: PLATELET COUNT DECREASED
     Dosage: 30 G, QD
     Route: 042
     Dates: start: 20110717, end: 20110721
  13. METHYLPREDNISOLONE [Concomitant]
     Indication: PLATELET COUNT DECREASED
     Dosage: 80 MG, QD
     Route: 042
     Dates: start: 20110708, end: 20110714
  14. METHYLPREDNISOLONE [Concomitant]
     Dosage: 40 MG, BID
     Route: 042
     Dates: start: 20110805, end: 20110807
  15. AMINOPHYLLIN TAB [Concomitant]
     Indication: SEPSIS
     Dosage: 250 MG, BID
     Route: 042
     Dates: start: 20110805, end: 20110807
  16. CITERAL [Concomitant]
     Indication: SEPSIS
     Dosage: 200 MG, BID
     Route: 042
     Dates: start: 20070805, end: 20070807

REACTIONS (5)
  - PANCYTOPENIA [None]
  - FEBRILE NEUTROPENIA [None]
  - SEPSIS [None]
  - PULMONARY OEDEMA [None]
  - PLATELET COUNT DECREASED [None]
